FAERS Safety Report 4350974-2 (Version None)
Quarter: 2004Q2

REPORT INFORMATION
  Report Type: 
  Country: None (occurrence: None)
  Receive Date: 20040427
  Receipt Date: 20040412
  Transmission Date: 20050107
  Serious: Yes (Death, Life-Threatening, Hospitalization)
  Sender: FDA-Public Use
  Company Number: 2004-BP-00161BP

PATIENT
  Age: 88 Year
  Sex: Male

DRUGS (12)
  1. MOBIC [Suspect]
     Indication: OSTEOARTHRITIS
     Dosage: 7.5 MG (7.5 MG, 1 QD), PO
     Route: 048
     Dates: start: 20030623, end: 20031125
  2. ACETYLSALICYLIC ACID SRT [Concomitant]
  3. OSCAL + D [Concomitant]
  4. LASIX [Concomitant]
  5. VITAMIN C [Concomitant]
  6. LIPITOR [Concomitant]
  7. NORVASC [Concomitant]
  8. TOPROL-XL [Concomitant]
  9. IMDUR [Concomitant]
  10. GLUCOTROL XL [Concomitant]
  11. GLUCOSAMINE (GLUCOSAMINE) [Concomitant]
  12. FOSAMAX [Concomitant]

REACTIONS (6)
  - DUODENAL ULCER HAEMORRHAGE [None]
  - GENERALISED OEDEMA [None]
  - HYPOTENSION [None]
  - INTESTINAL ISCHAEMIA [None]
  - MULTI-ORGAN FAILURE [None]
  - RENAL FAILURE [None]
